FAERS Safety Report 8394117-7 (Version None)
Quarter: 2012Q2

REPORT INFORMATION
  Report Type: 
  Country: None (occurrence: None)
  Receive Date: 20120530
  Receipt Date: 20120524
  Transmission Date: 20120825
  Serious: Yes (Life-Threatening, Hospitalization, Disabling)
  Sender: FDA-Public Use
  Company Number: FR-NAPPMUNDI-GBR-2012-0010689

PATIENT
  Sex: Male

DRUGS (4)
  1. MORPHINE SULFATE [Suspect]
     Indication: PAIN
     Dosage: UNK
     Route: 042
     Dates: start: 20111001, end: 20111217
  2. OXYCODONE HYDROCHLORIDE [Suspect]
     Indication: PAIN
     Dosage: 20 MG, DAILY
     Dates: start: 20111218
  3. KALINOX [Suspect]
     Indication: PAIN
     Dosage: UNK
     Route: 055
     Dates: start: 20111001, end: 20111217
  4. KETAMINE HCL [Suspect]
     Indication: PAIN
     Dosage: UNK
     Dates: start: 20111001, end: 20111214

REACTIONS (1)
  - GUILLAIN-BARRE SYNDROME [None]
